FAERS Safety Report 8336474-3 (Version None)
Quarter: 2012Q2

REPORT INFORMATION
  Report Type: 
  Country: None (occurrence: None)
  Receive Date: 20120504
  Receipt Date: 20120502
  Transmission Date: 20120825
  Serious: Yes (Death, Hospitalization)
  Sender: FDA-Public Use
  Company Number: PHHY2012BR010664

PATIENT
  Sex: Female
  Weight: 70 kg

DRUGS (2)
  1. FORMOTEROL FUMARATE [Suspect]
     Indication: LUNG DISORDER
     Dosage: 12/400 MCG
     Dates: start: 20110101, end: 20111215
  2. FORMOTEROL FUMARATE [Suspect]
     Dosage: 12/400 MCG
     Dates: start: 20111213, end: 20111215

REACTIONS (2)
  - NEOPLASM MALIGNANT [None]
  - DRUG ADMINISTRATION ERROR [None]
